FAERS Safety Report 13192759 (Version 1)
Quarter: 2017Q1

REPORT INFORMATION
  Report Type: Spontaneous
  Country: BR (occurrence: BR)
  Receive Date: 20170207
  Receipt Date: 20170207
  Transmission Date: 20170428
  Serious: Yes (Other)
  Sender: FDA-Public Use
  Company Number: BR-PFIZER INC-2017044735

PATIENT
  Age: 65 Year
  Sex: Female

DRUGS (5)
  1. PRISTIQ EXTENDED-RELEASE [Suspect]
     Active Substance: DESVENLAFAXINE SUCCINATE
     Indication: PANIC DISORDER
     Dosage: UNK
     Dates: start: 2016, end: 2016
  2. PRISTIQ EXTENDED-RELEASE [Suspect]
     Active Substance: DESVENLAFAXINE SUCCINATE
     Dosage: 100 MG, UNK
     Dates: start: 2016, end: 2016
  3. PRISTIQ EXTENDED-RELEASE [Suspect]
     Active Substance: DESVENLAFAXINE SUCCINATE
     Dosage: 100 MG, UNK
  4. PRISTIQ EXTENDED-RELEASE [Suspect]
     Active Substance: DESVENLAFAXINE SUCCINATE
     Dosage: 150 MG, UNK
     Dates: start: 2016
  5. RIVOTRIL [Concomitant]
     Active Substance: CLONAZEPAM
     Indication: PANIC DISORDER
     Dosage: UNK
     Dates: end: 2016

REACTIONS (11)
  - Muscle spasms [Not Recovered/Not Resolved]
  - Dry skin [Not Recovered/Not Resolved]
  - Hypersensitivity [Not Recovered/Not Resolved]
  - Swelling [Unknown]
  - Product use issue [Unknown]
  - Pain in extremity [Not Recovered/Not Resolved]
  - Erythema [Unknown]
  - Blister [Unknown]
  - Drug ineffective [Unknown]
  - Hyperhidrosis [Not Recovered/Not Resolved]
  - Thirst [Unknown]

NARRATIVE: CASE EVENT DATE: 2016
